FAERS Safety Report 5912146-7 (Version None)
Quarter: 2008Q4

REPORT INFORMATION
  Report Type: 
  Country: None (occurrence: None)
  Receive Date: 20081008
  Receipt Date: 20081008
  Transmission Date: 20090506
  Serious: Yes (Hospitalization)
  Sender: FDA-Public Use
  Company Number: US-PURDUE-USA_2004_0015715

PATIENT
  Age: 76 Year
  Sex: Female
  Weight: 66 kg

DRUGS (7)
  1. PERCOCET [Suspect]
     Indication: PAIN
     Dosage: 4 TABLET, PRN
     Route: 048
     Dates: start: 20040113, end: 20040113
  2. DILAUDID [Suspect]
     Indication: PAIN
     Dates: start: 20040113, end: 20040113
  3. FUROSEMIDE [Concomitant]
     Indication: DRUG USE FOR UNKNOWN INDICATION
     Dosage: 2 MG, DAILY
     Route: 048
     Dates: start: 20020701
  4. SYNTHROID [Concomitant]
     Indication: DRUG USE FOR UNKNOWN INDICATION
     Dates: start: 20020701
  5. DIOVAN                             /01319601/ [Concomitant]
     Indication: DRUG USE FOR UNKNOWN INDICATION
     Dosage: UNK, UNK
     Dates: start: 20020701
  6. WARFARIN SODIUM [Concomitant]
     Indication: DRUG USE FOR UNKNOWN INDICATION
     Dates: start: 20020701
  7. OXYCONTIN [Suspect]
     Indication: PAIN
     Dosage: 20 MG, Q12H
     Route: 048
     Dates: start: 20040113, end: 20040113

REACTIONS (4)
  - AGGRESSION [None]
  - AGITATION [None]
  - MEMORY IMPAIRMENT [None]
  - PARANOIA [None]
